FAERS Safety Report 21768319 (Version 1)
Quarter: 2022Q4

REPORT INFORMATION
  Report Type: Spontaneous
  Country: US (occurrence: US)
  Receive Date: 20221222
  Receipt Date: 20221222
  Transmission Date: 20230113
  Serious: No
  Sender: FDA-Public Use
  Company Number: US-PERRIGO-22US014176

PATIENT

DRUGS (2)
  1. NASONEX [Suspect]
     Active Substance: MOMETASONE FUROATE
     Indication: Nasal congestion
     Dosage: UNKNOWN, UNKNOWN
     Route: 045
     Dates: start: 202210
  2. NASONEX [Suspect]
     Active Substance: MOMETASONE FUROATE
     Indication: Drainage

REACTIONS (3)
  - Throat irritation [Unknown]
  - Condition aggravated [Unknown]
  - Drug effect less than expected [Unknown]

NARRATIVE: CASE EVENT DATE: 20221001
